FAERS Safety Report 12384885 (Version 1)
Quarter: 2016Q2

REPORT INFORMATION
  Report Type: Spontaneous
  Country: US (occurrence: None)
  Receive Date: 20160518
  Receipt Date: 20160518
  Transmission Date: 20160815
  Serious: Yes (Hospitalization)
  Sender: FDA-Public Use
  Company Number: None

PATIENT
  Age: 86 Year
  Sex: Male
  Weight: 69.1 kg

DRUGS (5)
  1. RUXOLITINIB, 5MG INCYTE [Suspect]
     Active Substance: RUXOLITINIB
     Indication: CHRONIC MYELOID LEUKAEMIA
     Route: 048
     Dates: start: 20160301, end: 20160325
  2. ALBUTEROL. [Concomitant]
     Active Substance: ALBUTEROL
  3. ALLOPURINOL. [Concomitant]
     Active Substance: ALLOPURINOL
  4. BUDESONIDE-FOMOTEROL [Concomitant]
  5. ACYCLOVIR. [Concomitant]
     Active Substance: ACYCLOVIR

REACTIONS (9)
  - Condition aggravated [None]
  - Speech disorder [None]
  - Respiratory failure [None]
  - Cardiac failure congestive [None]
  - Pneumonia [None]
  - Chronic obstructive pulmonary disease [None]
  - Confusional state [None]
  - Thrombocytopenia [None]
  - Anaemia [None]

NARRATIVE: CASE EVENT DATE: 20160413
